FAERS Safety Report 23508039 (Version 1)
Quarter: 2024Q1

REPORT INFORMATION
  Report Type: Spontaneous
  Country: US (occurrence: US)
  Receive Date: 20240209
  Receipt Date: 20240209
  Transmission Date: 20240410
  Serious: No
  Sender: FDA-Public Use
  Company Number: US-009507513-2401USA005840

PATIENT
  Age: 40 Year
  Sex: Male

DRUGS (1)
  1. INVANZ [Suspect]
     Active Substance: ERTAPENEM SODIUM
     Dosage: FIVE COURSES, SOME WITH LONGER COURSES (} 6 WEEKS).
     Route: 042
     Dates: start: 201811, end: 202202

REACTIONS (1)
  - Product use in unapproved indication [Unknown]
